FAERS Safety Report 4958009-5 (Version None)
Quarter: 2006Q1

REPORT INFORMATION
  Report Type: 
  Country: None (occurrence: None)
  Receive Date: 20060330
  Receipt Date: 20060309
  Transmission Date: 20060701
  Serious: Yes (Hospitalization, Disabling)
  Sender: FDA-Public Use
  Company Number: US-MERCK-0603USA02035

PATIENT
  Age: 45 Year
  Sex: Male
  Weight: 91 kg

DRUGS (7)
  1. VIOXX [Suspect]
     Indication: PAIN
     Route: 048
     Dates: start: 19990101, end: 20000101
  2. VIOXX [Suspect]
     Route: 048
     Dates: start: 19990101, end: 20000101
  3. VIOXX [Suspect]
     Indication: HERNIA PAIN
     Route: 048
     Dates: start: 19990101, end: 20000101
  4. VIOXX [Suspect]
     Route: 048
     Dates: start: 19990101, end: 20000101
  5. GLUCOPHAGE [Concomitant]
     Route: 048
  6. ELAVIL [Concomitant]
     Route: 048
  7. NEURONTIN [Concomitant]
     Route: 048

REACTIONS (6)
  - CEREBROVASCULAR ACCIDENT [None]
  - CORONARY ARTERY DISEASE [None]
  - CORONARY ARTERY STENOSIS [None]
  - HYPERCHOLESTEROLAEMIA [None]
  - MYOCARDIAL INFARCTION [None]
  - OVERDOSE [None]
